FAERS Safety Report 10484524 (Version 1)
Quarter: 2014Q3

REPORT INFORMATION
  Report Type: Spontaneous
  Country: IN (occurrence: IN)
  Receive Date: 20140930
  Receipt Date: 20140930
  Transmission Date: 20150326
  Serious: Yes (Death)
  Sender: FDA-Public Use
  Company Number: IN-PFIZER INC-2014266308

PATIENT
  Age: 57 Year

DRUGS (1)
  1. SUTENT [Suspect]
     Active Substance: SUNITINIB MALATE
     Indication: METASTATIC RENAL CELL CARCINOMA
     Dosage: 50 MG, 1X/DAY
     Route: 048
     Dates: start: 20130904

REACTIONS (4)
  - Disease progression [Fatal]
  - Fluid retention [Fatal]
  - Blood pressure decreased [Fatal]
  - Metastatic renal cell carcinoma [Fatal]
